FAERS Safety Report 24850999 (Version 3)
Quarter: 2025Q1

REPORT INFORMATION
  Report Type: Spontaneous
  Country: US (occurrence: US)
  Receive Date: 20250116
  Receipt Date: 20250320
  Transmission Date: 20250409
  Serious: No
  Sender: PHARMING GROUP
  Company Number: US-PHARMING-PHAUS2025000029

PATIENT

DRUGS (6)
  1. RUCONEST [Suspect]
     Active Substance: CONESTAT ALFA
     Indication: Hereditary angioedema
     Dosage: 3600 IU, TWICE WEEKLY
     Route: 042
     Dates: start: 202412
  2. RUCONEST [Suspect]
     Active Substance: CONESTAT ALFA
     Dosage: 3600 IU, TWICE WEEKLY
     Route: 042
     Dates: start: 202412
  3. RUCONEST [Suspect]
     Active Substance: CONESTAT ALFA
     Dosage: 3600 IU, TWICE WEEKLY
     Route: 042
     Dates: start: 202412
  4. EPINEPHRINE [Concomitant]
     Active Substance: EPINEPHRINE
     Indication: Product used for unknown indication
  5. ICATIBANT ACETATE [Concomitant]
     Active Substance: ICATIBANT ACETATE
     Indication: Product used for unknown indication
  6. ICATIBANT [Concomitant]
     Active Substance: ICATIBANT ACETATE
     Indication: Product used for unknown indication

REACTIONS (2)
  - Weight fluctuation [Unknown]
  - Intentional product use issue [Unknown]
